FAERS Safety Report 5973779-5 (Version None)
Quarter: 2008Q4

REPORT INFORMATION
  Report Type: 
  Country: None (occurrence: None)
  Receive Date: 20081201
  Receipt Date: 20080121
  Transmission Date: 20090506
  Serious: No
  Sender: FDA-Public Use
  Company Number: US-AMGEN-KDL259522

PATIENT
  Sex: Female
  Weight: 65.8 kg

DRUGS (2)
  1. ENBREL [Suspect]
     Indication: RHEUMATOID ARTHRITIS
     Route: 058
     Dates: start: 20061002
  2. METHOTREXATE [Concomitant]
     Dates: start: 20000101

REACTIONS (4)
  - JOINT STIFFNESS [None]
  - RHEUMATOID ARTHRITIS [None]
  - THROMBOPHLEBITIS SUPERFICIAL [None]
  - VARICOSE VEIN [None]
